FAERS Safety Report 11019839 (Version 2)
Quarter: 2015Q2

REPORT INFORMATION
  Report Type: Spontaneous
  Country: US (occurrence: US)
  Receive Date: 20150412
  Receipt Date: 20150525
  Transmission Date: 20150821
  Serious: No
  Sender: FDA-Public Use
  Company Number: US-JNJFOC-20121001460

PATIENT
  Sex: Female

DRUGS (16)
  1. GABAPENTIN. [Concomitant]
     Active Substance: GABAPENTIN
     Indication: MUSCLE SPASMS
     Dosage: 1 AT BEDTIME ABOUT 8PM OR AS NEEDED
     Route: 065
  2. GABAPENTIN. [Concomitant]
     Active Substance: GABAPENTIN
     Indication: PAIN IN EXTREMITY
     Dosage: 1 AT BEDTIME ABOUT 8PM OR AS NEEDED
     Route: 065
  3. CALCIUM CITRATE WITH VITAMIN D [Concomitant]
     Active Substance: CALCIUM CITRATE\VITAMIN D
     Indication: PRODUCT USED FOR UNKNOWN INDICATION
     Dosage: 500 MG CALCIUM
     Route: 065
  4. ALPRAZOLAM. [Concomitant]
     Active Substance: ALPRAZOLAM
     Indication: ANXIETY
     Dosage: TAKEN AT BEDTIME ONLY
     Route: 065
  5. OSTEO BI-FLEX [Concomitant]
     Active Substance: CHONDROITIN SULFATE A\GLUCOSAMINE
     Indication: PRODUCT USED FOR UNKNOWN INDICATION
     Dosage: TRIPLE DOSE
     Route: 065
  6. AMLODIPINE BESYLATE. [Concomitant]
     Active Substance: AMLODIPINE BESYLATE
     Indication: PRODUCT USED FOR UNKNOWN INDICATION
     Route: 065
     Dates: start: 20100419
  7. CARVEDILOL. [Concomitant]
     Active Substance: CARVEDILOL
     Indication: HEART VALVE INCOMPETENCE
     Dosage: 1 IN THE MORNING
     Route: 065
  8. FAMOTIDINE. [Concomitant]
     Active Substance: FAMOTIDINE
     Indication: PRODUCT USED FOR UNKNOWN INDICATION
     Dosage: 1 BEFORE BREAKFAST AND 1 BEFORE BEDTIME
     Route: 065
  9. IMIPRAMINE [Concomitant]
     Active Substance: IMIPRAMINE
     Indication: URINARY INCONTINENCE
     Dosage: TAKEN AT BEDTIME AND ABOUT TO FINISH THIS
     Route: 065
  10. FISH OIL [Concomitant]
     Active Substance: FISH OIL
     Indication: PRODUCT USED FOR UNKNOWN INDICATION
     Dosage: 360MG OF OMEGA-3
     Route: 065
  11. CITALOPRAM [Concomitant]
     Active Substance: CITALOPRAM HYDROBROMIDE
     Indication: PRODUCT USED FOR UNKNOWN INDICATION
     Route: 065
  12. MULTIVITAMINS [Concomitant]
     Active Substance: VITAMINS
     Indication: PRODUCT USED FOR UNKNOWN INDICATION
     Route: 065
  13. LEVAQUIN [Suspect]
     Active Substance: LEVOFLOXACIN
     Indication: PRODUCT USED FOR UNKNOWN INDICATION
     Route: 065
  14. SIMVASTATIN. [Concomitant]
     Active Substance: SIMVASTATIN
     Indication: PRODUCT USED FOR UNKNOWN INDICATION
     Dosage: 1 AT BEDTIME
     Route: 065
  15. DICLOFENAC SODIUM. [Concomitant]
     Active Substance: DICLOFENAC SODIUM
     Indication: ARTHRITIS
     Dosage: 1 OR 2 DAILY AT AM/PM
     Route: 065
  16. VITAMIN B12 [Concomitant]
     Active Substance: CYANOCOBALAMIN
     Indication: PRODUCT USED FOR UNKNOWN INDICATION
     Route: 065

REACTIONS (1)
  - Drug hypersensitivity [Unknown]
